FAERS Safety Report 6216920-1 (Version None)
Quarter: 2009Q2

REPORT INFORMATION
  Report Type: 
  Country: None (occurrence: None)
  Receive Date: 20090604
  Receipt Date: 20090530
  Transmission Date: 20091009
  Serious: Yes (Other)
  Sender: FDA-Public Use
  Company Number: 2009006039

PATIENT

DRUGS (1)
  1. TREANDA [Suspect]
     Dosage: 50-60MG/M2), INTRAVENOUS DRIP
     Route: 041

REACTIONS (1)
  - STEVENS-JOHNSON SYNDROME [None]
